FAERS Safety Report 10218452 (Version 2)
Quarter: 2014Q2

REPORT INFORMATION
  Report Type: Report from Study
  Country: ZA (occurrence: ZA)
  Receive Date: 20140605
  Receipt Date: 20140605
  Transmission Date: 20141212
  Serious: Yes (Hospitalization)
  Sender: FDA-Public Use
  Company Number: PHHY2013ZA058638

PATIENT
  Age: 56 Year
  Sex: Female

DRUGS (4)
  1. ACLASTA [Suspect]
     Indication: OSTEOPOROSIS
     Dosage: 5 MG/100ML, PER YEAR
     Route: 042
     Dates: start: 2011
  2. ACLASTA [Suspect]
     Dosage: 5 MG/100ML, PER YEAR
     Route: 042
     Dates: start: 201210
  3. CALTRATE [Concomitant]
     Dosage: UNK
  4. HORMONES NOS [Concomitant]
     Dosage: UNK

REACTIONS (3)
  - Gastrooesophageal reflux disease [Unknown]
  - Alopecia [Unknown]
  - Gastrointestinal disorder [Unknown]
